FAERS Safety Report 23243455 (Version 1)
Quarter: 2023Q4

REPORT INFORMATION
  Report Type: Report from Study
  Country: AU (occurrence: None)
  Receive Date: 20231130
  Receipt Date: 20231130
  Transmission Date: 20240110
  Serious: Yes (Hospitalization)
  Sender: FDA-Public Use
  Company Number: AU-ROCHE-3462737

PATIENT
  Age: 83 Year
  Sex: Male

DRUGS (18)
  1. OBINUTUZUMAB [Suspect]
     Active Substance: OBINUTUZUMAB
     Indication: Chronic lymphocytic leukaemia
     Route: 042
     Dates: start: 20160822
  2. ACALABRUTINIB [Suspect]
     Active Substance: ACALABRUTINIB
     Indication: Chronic lymphocytic leukaemia
     Route: 048
     Dates: start: 20160802
  3. TOCOPHEROL [Concomitant]
     Active Substance: TOCOPHEROL
     Dates: start: 1976
  4. MAGNESIUM [Concomitant]
     Active Substance: MAGNESIUM
  5. UBIQUINOL [Concomitant]
     Active Substance: UBIQUINOL
     Dates: start: 1976
  6. MAGNESIUM PHOSPHATE [Concomitant]
     Active Substance: MAGNESIUM PHOSPHATE, TRIBASIC, PENTAHYDRATE
     Dates: start: 2016
  7. DIETARY SUPPLEMENT\HERBALS\MILK THISTLE [Concomitant]
     Active Substance: MILK THISTLE
     Dates: start: 2016
  8. LORATADINE [Concomitant]
     Active Substance: LORATADINE
     Indication: Rash
     Dates: start: 20160830
  9. ASCORBIC ACID [Concomitant]
     Active Substance: ASCORBIC ACID
  10. FERROUS SULFATE [Concomitant]
     Active Substance: FERROUS SULFATE
  11. CALAMINE [Concomitant]
     Active Substance: CALAMINE\FERRIC OXIDE RED\ZINC OXIDE
  12. ZINC OXIDE [Concomitant]
     Active Substance: ZINC OXIDE
  13. TRIAMCINOLONE ACETONIDE [Concomitant]
     Active Substance: TRIAMCINOLONE ACETONIDE
     Dates: start: 20180611
  14. ALLANTOIN [Concomitant]
     Active Substance: ALLANTOIN
  15. HERBALS\HOMEOPATHICS [Concomitant]
     Active Substance: HERBALS\HOMEOPATHICS
  16. BUPRENORPHINE HYDROCHLORIDE [Concomitant]
     Active Substance: BUPRENORPHINE HYDROCHLORIDE
     Dates: start: 20220922
  17. MELATONIN [Concomitant]
     Active Substance: MELATONIN
     Dates: start: 20220925
  18. ATORVASTATIN CALCIUM [Concomitant]
     Active Substance: ATORVASTATIN CALCIUM
     Dates: start: 20230220

REACTIONS (1)
  - Inguinal hernia [Recovered/Resolved]

NARRATIVE: CASE EVENT DATE: 20230417
